FAERS Safety Report 4664779-6 (Version None)
Quarter: 2005Q2

REPORT INFORMATION
  Report Type: 
  Country: None (occurrence: None)
  Receive Date: 20050518
  Receipt Date: 20050502
  Transmission Date: 20051028
  Serious: Yes (Other)
  Sender: FDA-Public Use
  Company Number: PHEH2005US05037

PATIENT
  Age: 63 Year
  Sex: Male

DRUGS (2)
  1. AREDIA [Suspect]
     Indication: HYPERCALCAEMIA OF MALIGNANCY
     Dates: start: 20010401, end: 20021001
  2. ZOMETA [Suspect]
     Indication: HYPERCALCAEMIA OF MALIGNANCY

REACTIONS (4)
  - ASEPTIC NECROSIS BONE [None]
  - PRIMARY SEQUESTRUM [None]
  - TOOTH EXTRACTION [None]
  - TOOTH INFECTION [None]
